FAERS Safety Report 16265876 (Version 1)
Quarter: 2019Q2

REPORT INFORMATION
  Report Type: Report from Study
  Country: US (occurrence: US)
  Receive Date: 20190502
  Receipt Date: 20190502
  Transmission Date: 20190711
  Serious: Yes (Other)
  Sender: FDA-Public Use
  Company Number: US-TEVA-2019-US-1043684

PATIENT

DRUGS (1)
  1. ISONIAZID. [Suspect]
     Active Substance: ISONIAZID
     Indication: ANTIBIOTIC PROPHYLAXIS
     Dosage: THE PATIENT RECEIVED 20-30 MG/KG/DOSE (MAXIMUM 900 MG/D) UNDER DIRECTLY OBSERVED PREVENTIVE THERAPY
     Route: 065

REACTIONS (1)
  - Angioedema [Unknown]
